FAERS Safety Report 17864782 (Version 1)
Quarter: 2020Q2

REPORT INFORMATION
  Report Type: Report from Study
  Country: FR (occurrence: FR)
  Receive Date: 20200605
  Receipt Date: 20200605
  Transmission Date: 20200714
  Serious: Yes (Other)
  Sender: FDA-Public Use
  Company Number: FR-MYLANLABS-2020M1054437

PATIENT
  Age: 14 Year
  Sex: Female

DRUGS (10)
  1. CYTARABINE. [Suspect]
     Active Substance: CYTARABINE
     Dosage: AS FIRST CONSOLIDATION THERAPY; TOTAL DOSE: 18 G/M2
     Route: 065
  2. HYDROCORTISONE. [Suspect]
     Active Substance: HYDROCORTISONE
     Indication: ACUTE MYELOID LEUKAEMIA
     Dosage: AS INDUCTION THERAPY
     Route: 065
  3. FLUDARABIN [Concomitant]
     Active Substance: FLUDARABINE PHOSPHATE
     Indication: ACUTE MYELOID LEUKAEMIA
     Dosage: ADMINISTERED OVER 30 MIN ON DAYS 1 TO 5
     Route: 065
  4. MITOXANTRONE [Suspect]
     Active Substance: MITOXANTRONE HYDROCHLORIDE
     Indication: ACUTE MYELOID LEUKAEMIA
     Dosage: AS INDUCTION THERAPY; TOTAL DOSE 60 MG/M2
     Route: 065
  5. AMSACRINE [Suspect]
     Active Substance: AMSACRINE
     Indication: ACUTE MYELOID LEUKAEMIA
     Dosage: AS FIRST CONSOLIDATION THERAPY; TOTAL DOSE 300 MG/M2
     Route: 065
  6. CLOFARABINE. [Concomitant]
     Active Substance: CLOFARABINE
     Indication: ACUTE MYELOID LEUKAEMIA
     Dosage: 40 MG/M2 OVER 2 HOURS
     Route: 065
  7. METHOTREXATE. [Suspect]
     Active Substance: METHOTREXATE
     Indication: ACUTE MYELOID LEUKAEMIA
     Dosage: AS INDUCTION THERAPY
     Route: 037
  8. DAUNORUBICIN [Concomitant]
     Active Substance: DAUNORUBICIN
     Indication: ACUTE MYELOID LEUKAEMIA
     Dosage: 60 MG/M2 OVER 1 HOUR
     Route: 065
  9. CYTARABINE. [Suspect]
     Active Substance: CYTARABINE
     Indication: ACUTE MYELOID LEUKAEMIA
     Dosage: AS INDUCTION THERAPY; TOTAL DOSE: 1400MG/M2
     Route: 065
  10. GEMTUZUMAB [Concomitant]
     Active Substance: GEMTUZUMAB OZOGAMICIN
     Indication: ACUTE MYELOID LEUKAEMIA
     Dosage: ADMINISTERED OVER 2 HOURS ON DAYS 1, 4, AND 7
     Route: 065

REACTIONS (1)
  - Drug ineffective [Unknown]
